FAERS Safety Report 14208313 (Version 1)
Quarter: 2017Q4

REPORT INFORMATION
  Report Type: Spontaneous
  Country: US (occurrence: US)
  Receive Date: 20171121
  Receipt Date: 20171121
  Transmission Date: 20180321
  Serious: Yes (Other)
  Sender: FDA-Public Use
  Company Number: None

PATIENT
  Age: 80 Year
  Sex: Female
  Weight: 71.55 kg

DRUGS (8)
  1. VENLAFAXINE [Suspect]
     Active Substance: VENLAFAXINE HYDROCHLORIDE
     Indication: ANTIDEPRESSANT THERAPY
     Dosage: ?          QUANTITY:90 TABLET(S);?
     Route: 048
     Dates: end: 20171020
  2. SYMBICORT [Concomitant]
     Active Substance: BUDESONIDE\FORMOTEROL FUMARATE DIHYDRATE
  3. VENTOLIN [Concomitant]
     Active Substance: ALBUTEROL SULFATE
  4. MAGNESIUM [Concomitant]
     Active Substance: MAGNESIUM
  5. MONTELUKAST [Concomitant]
     Active Substance: MONTELUKAST SODIUM
  6. MELOXICAM. [Concomitant]
     Active Substance: MELOXICAM
  7. VITAMIN D [Concomitant]
     Active Substance: CHOLECALCIFEROL
  8. VITAMIN E [Concomitant]
     Active Substance: .ALPHA.-TOCOPHEROL

REACTIONS (16)
  - Eructation [None]
  - Confusional state [None]
  - Ocular hyperaemia [None]
  - Dizziness [None]
  - Asthenia [None]
  - Flatulence [None]
  - Lacrimation increased [None]
  - Fatigue [None]
  - Abdominal discomfort [None]
  - Visual impairment [None]
  - Balance disorder [None]
  - Vomiting [None]
  - Disorientation [None]
  - Gastroenteritis [None]
  - Nausea [None]
  - Vision blurred [None]

NARRATIVE: CASE EVENT DATE: 20171019
